FAERS Safety Report 9351806 (Version 1)
Quarter: 2013Q2

REPORT INFORMATION
  Report Type: Spontaneous
  Country: US (occurrence: US)
  Receive Date: 20130617
  Receipt Date: 20130617
  Transmission Date: 20140414
  Serious: No
  Sender: FDA-Public Use
  Company Number: US-UPSHER-SMITH LABORATORIES, INC.-13000255

PATIENT
  Sex: Female

DRUGS (9)
  1. PACERONE (USL) [Suspect]
     Indication: ATRIAL FIBRILLATION
     Dosage: 200 MG, QD
     Route: 048
     Dates: start: 201101, end: 201211
  2. PACERONE (USL) [Suspect]
     Dosage: 150 MG, QD
     Route: 048
     Dates: start: 201211
  3. CRESTOR                            /01588601/ [Concomitant]
     Dosage: UNK
  4. ANTIHYPERTENSIVES [Concomitant]
     Dosage: UNK
  5. VITAMIN E                          /00110501/ [Concomitant]
     Dosage: UNK
  6. VITAMIN D                          /00107901/ [Concomitant]
     Dosage: UNK
  7. OMEGA 3 FISH OIL [Concomitant]
     Dosage: UNK
  8. CALCIUM [Concomitant]
     Dosage: UNK
  9. VITAMINS NOS [Concomitant]
     Dosage: UNK

REACTIONS (4)
  - Palpitations [Not Recovered/Not Resolved]
  - Alopecia [Not Recovered/Not Resolved]
  - Dry eye [Recovering/Resolving]
  - Dry skin [Recovering/Resolving]
